FAERS Safety Report 15450959 (Version 1)
Quarter: 2018Q4

REPORT INFORMATION
  Report Type: Spontaneous
  Country: NL (occurrence: NL)
  Receive Date: 20181001
  Receipt Date: 20181001
  Transmission Date: 20190204
  Serious: Yes (Life-Threatening, Hospitalization, Other)
  Sender: FDA-Public Use
  Company Number: NL-LUPIN PHARMACEUTICALS INC.-2018-06649

PATIENT
  Age: 61 Year
  Sex: Female

DRUGS (6)
  1. CLEMASTINE [Suspect]
     Active Substance: CLEMASTINE
     Indication: PRODUCT USED FOR UNKNOWN INDICATION
     Dosage: 5 TABLETS OF 1 MG
     Route: 065
  2. RISPERIDONE  TABLET [Suspect]
     Active Substance: RISPERIDONE
     Indication: PRODUCT USED FOR UNKNOWN INDICATION
     Dosage: 6 TABLETS OF 1 MG
     Route: 065
  3. NAPROXEN. [Suspect]
     Active Substance: NAPROXEN
     Indication: PRODUCT USED FOR UNKNOWN INDICATION
     Dosage: 20 TABLETS OF 500 MG
     Route: 065
  4. ZOLPIDEM TARTARATE [Suspect]
     Active Substance: ZOLPIDEM TARTRATE
     Indication: PRODUCT USED FOR UNKNOWN INDICATION
     Dosage: 40 TABLETS OF 10 MG
     Route: 065
  5. BROMAZEPAM [Suspect]
     Active Substance: BROMAZEPAM
     Indication: PRODUCT USED FOR UNKNOWN INDICATION
     Dosage: 90 TABLETS OF 3 MG
     Route: 065
  6. FLUOXETINE [Suspect]
     Active Substance: FLUOXETINE HYDROCHLORIDE
     Indication: PRODUCT USED FOR UNKNOWN INDICATION
     Dosage: 139 TABLETS OF 20 MG
     Route: 065

REACTIONS (9)
  - Circulatory collapse [Recovered/Resolved]
  - Coordination abnormal [Unknown]
  - Electrocardiogram QT prolonged [Recovered/Resolved]
  - Cardiac failure [Recovered/Resolved]
  - Torsade de pointes [Recovered/Resolved]
  - Somnolence [Unknown]
  - Intentional overdose [Unknown]
  - Muscular weakness [Unknown]
  - Toxicity to various agents [Unknown]
